FAERS Safety Report 9502653 (Version 1)
Quarter: 2013Q3

REPORT INFORMATION
  Report Type: Spontaneous
  Country: US (occurrence: US)
  Receive Date: 20130906
  Receipt Date: 20130906
  Transmission Date: 20140515
  Serious: Yes (Hospitalization)
  Sender: FDA-Public Use
  Company Number: US-ASTRAZENECA-2013SE66374

PATIENT
  Age: 54 Year
  Sex: Female

DRUGS (1)
  1. ZOLMITRIPTAN [Suspect]
     Indication: MIGRAINE

REACTIONS (1)
  - Stress cardiomyopathy [Unknown]
